FAERS Safety Report 12559061 (Version 1)
Quarter: 2016Q3

REPORT INFORMATION
  Report Type: Spontaneous
  Country: US (occurrence: US)
  Receive Date: 20160715
  Receipt Date: 20160715
  Transmission Date: 20161109
  Serious: No
  Sender: FDA-Public Use
  Company Number: US-ASTRAZENECA-2016SE76461

PATIENT
  Sex: Female

DRUGS (3)
  1. ZANTAC [Concomitant]
     Active Substance: RANITIDINE HYDROCHLORIDE
  2. NEXIUM 24HR [Suspect]
     Active Substance: ESOMEPRAZOLE MAGNESIUM
     Indication: DYSPEPSIA
     Dosage: 22.3 MG CAPSULE, ORALLY, ONCE A DAY IN MORNING
     Route: 048
  3. NEXIUM 24HR [Suspect]
     Active Substance: ESOMEPRAZOLE MAGNESIUM
     Indication: GASTRIC DISORDER
     Dosage: 22.3 MG CAPSULE, ORALLY, ONCE A DAY IN MORNING
     Route: 048

REACTIONS (4)
  - Dyspepsia [Recovered/Resolved]
  - Product use issue [Unknown]
  - Disease recurrence [Recovered/Resolved]
  - Gastric disorder [Recovered/Resolved]
